FAERS Safety Report 17282088 (Version 1)
Quarter: 2020Q1

REPORT INFORMATION
  Report Type: Spontaneous
  Country: US (occurrence: US)
  Receive Date: 20200116
  Receipt Date: 20200116
  Transmission Date: 20200409
  Serious: Yes (Other)
  Sender: FDA-Public Use
  Company Number: None

PATIENT
  Age: 45 Year
  Sex: Female
  Weight: 82.8 kg

DRUGS (1)
  1. PHENTERMINE. [Suspect]
     Active Substance: PHENTERMINE
     Indication: WEIGHT DECREASED
     Dosage: ?          QUANTITY:1 CAPSULE(S);?
     Route: 048
     Dates: start: 20180701, end: 20190131

REACTIONS (4)
  - Dysuria [None]
  - Pollakiuria [None]
  - Micturition urgency [None]
  - Pain [None]

NARRATIVE: CASE EVENT DATE: 20180701
